FAERS Safety Report 9637461 (Version 1)
Quarter: 2013Q4

REPORT INFORMATION
  Report Type: Spontaneous
  Country: ES (occurrence: ES)
  Receive Date: 20131022
  Receipt Date: 20131022
  Transmission Date: 20140711
  Serious: Yes (Congenital Anomaly)
  Sender: FDA-Public Use
  Company Number: ES-BAYER-2013-123950

PATIENT
  Age: 30 Year
  Sex: Female
  Weight: 60 kg

DRUGS (1)
  1. ASPIRINA 500 MG COMPRIMIDOS EFERVESCENTES [Suspect]
     Route: 048

REACTIONS (1)
  - Headache [Unknown]
